FAERS Safety Report 4475777-X (Version None)
Quarter: 2004Q4

REPORT INFORMATION
  Report Type: 
  Country: None (occurrence: None)
  Receive Date: 20041015
  Receipt Date: 20011031
  Transmission Date: 20050328
  Serious: Yes (Other)
  Sender: FDA-Public Use
  Company Number: JP-GLAXOSMITHKLINE-B0125542A

PATIENT
  Age: 80 Year
  Sex: Female
  Weight: 38 kg

DRUGS (13)
  1. ZOVIRAX [Suspect]
     Indication: HERPES ZOSTER
     Dosage: 400MG TWICE PER DAY
     Route: 048
     Dates: start: 20001207, end: 20001210
  2. ASPIRIN [Concomitant]
     Indication: CEREBRAL INFARCTION
     Dosage: 1TAB PER DAY
     Route: 048
  3. FAMOTIDINE [Concomitant]
     Indication: GASTROINTESTINAL HAEMORRHAGE
     Dosage: 10MG PER DAY
     Route: 048
  4. MOSAPRIDE CITRATE [Concomitant]
     Indication: GASTRITIS
     Dosage: 3TAB PER DAY
     Route: 048
     Dates: end: 20001210
  5. CALCITRIOL [Concomitant]
     Indication: HYPERPARATHYROIDISM SECONDARY
     Dosage: 2CAP PER DAY
     Route: 048
  6. PRECIPITATED CALCIUM CARBONATE [Concomitant]
     Indication: HYPERPHOSPHATAEMIA
     Dosage: 3TAB PER DAY
     Route: 048
     Dates: end: 20001210
  7. AMEZINIUM METISULFATE [Concomitant]
     Indication: HYPOTENSION
     Dosage: 1TAB PER DAY
     Route: 048
     Dates: end: 20001210
  8. NITROGLYCERIN [Concomitant]
     Indication: ANGINA UNSTABLE
     Route: 062
     Dates: end: 20001210
  9. DIALYSIS [Concomitant]
  10. DIGOXIN [Concomitant]
     Indication: ATRIAL FIBRILLATION
     Dosage: .125MG PER DAY
     Route: 048
     Dates: start: 20001202
  11. METOPROLOL TARTRATE [Concomitant]
     Indication: ATRIAL FIBRILLATION
     Dosage: 20MG PER DAY
     Dates: start: 20001204, end: 20001214
  12. MECOBALAMIN [Concomitant]
     Indication: HERPES ZOSTER
     Dosage: 3TAB PER DAY
     Route: 048
     Dates: start: 20001207, end: 20001210
  13. EBASTINE [Concomitant]
     Indication: PRURITUS
     Dosage: 5MG PER DAY
     Route: 048

REACTIONS (8)
  - BLOOD CREATININE INCREASED [None]
  - BLOOD UREA INCREASED [None]
  - DEPRESSED LEVEL OF CONSCIOUSNESS [None]
  - DRUG TOXICITY [None]
  - DYSKINESIA [None]
  - MALAISE [None]
  - SPEECH DISORDER [None]
  - TREMOR [None]
